FAERS Safety Report 6368769-7 (Version None)
Quarter: 2009Q3

REPORT INFORMATION
  Report Type: 
  Country: None (occurrence: None)
  Receive Date: 20090922
  Receipt Date: 20090917
  Transmission Date: 20100115
  Serious: Yes (Life-Threatening, Disabling, Other)
  Sender: FDA-Public Use
  Company Number: US-MERCK-0908USA01138

PATIENT
  Age: 78 Year
  Sex: Female

DRUGS (4)
  1. PEPCID [Suspect]
     Indication: GASTRIC ULCER
     Route: 048
     Dates: start: 20080101, end: 20090701
  2. PEPCID [Suspect]
     Indication: GASTROOESOPHAGEAL REFLUX DISEASE
     Route: 048
     Dates: start: 20080101, end: 20090701
  3. FOLIC ACID [Concomitant]
     Route: 065
  4. CYANOCOBALAMIN [Concomitant]
     Route: 065

REACTIONS (8)
  - ARTHRALGIA [None]
  - BONE PAIN [None]
  - DYSPNOEA [None]
  - FATIGUE [None]
  - HAEMOGLOBIN DECREASED [None]
  - HEART RATE INCREASED [None]
  - HYPERTENSION [None]
  - MYALGIA [None]
